FAERS Safety Report 18037486 (Version 1)
Quarter: 2020Q3

REPORT INFORMATION
  Report Type: Spontaneous
  Country: US (occurrence: US)
  Receive Date: 20200717
  Receipt Date: 20200717
  Transmission Date: 20201103
  Serious: No
  Sender: FDA-Public Use
  Company Number: US-GLENMARK PHARMACEUTICALS-2020GMK046307

PATIENT

DRUGS (4)
  1. GABAPENTIN. [Concomitant]
     Active Substance: GABAPENTIN
     Indication: PRODUCT USED FOR UNKNOWN INDICATION
     Dosage: UNK
     Route: 065
  2. TELMISARTAN TABLETS [Suspect]
     Active Substance: TELMISARTAN
     Indication: HYPERTENSION
     Dosage: 40 MG, OD (AT NIGHT)
     Route: 065
     Dates: start: 20200129, end: 20200216
  3. TELMISARTAN TABLETS [Suspect]
     Active Substance: TELMISARTAN
     Dosage: 40 MG, OD
     Route: 065
     Dates: start: 202002, end: 20200226
  4. TELMISARTAN TABLETS [Suspect]
     Active Substance: TELMISARTAN
     Dosage: 40 MG, OD
     Route: 065
     Dates: start: 202003, end: 202003

REACTIONS (2)
  - Abdominal pain upper [Recovered/Resolved]
  - Abdominal discomfort [Recovered/Resolved]

NARRATIVE: CASE EVENT DATE: 202002
